FAERS Safety Report 8222143-7 (Version None)
Quarter: 2012Q1

REPORT INFORMATION
  Report Type: 
  Country: None (occurrence: None)
  Receive Date: 20120307
  Receipt Date: 20110503
  Transmission Date: 20120608
  Serious: Yes (Other)
  Sender: FDA-Public Use
  Company Number: PHHY2011US38279

PATIENT

DRUGS (13)
  1. TOPAMAX [Concomitant]
  2. MAGNESIUM [Concomitant]
  3. RUFINAMIDE [Concomitant]
  4. MULTIVITAMIS [Concomitant]
  5. VITAMIN D [Concomitant]
  6. VITAMIN B-12 [Concomitant]
  7. POTASSIUIM [Concomitant]
  8. AFINITOR [Suspect]
     Indication: RENAL CELL CARCINOMA
     Dosage: 10 MG
  9. DOXEPIN HCL [Concomitant]
  10. ZINC SULFATE [Concomitant]
  11. LAMICTAL [Concomitant]
  12. PROGRESTERONE [Concomitant]
  13. CALCIUM CARBONATE [Concomitant]

REACTIONS (1)
  - PNEUMONITIS [None]
